FAERS Safety Report 12139966 (Version 1)
Quarter: 2016Q1

REPORT INFORMATION
  Report Type: Spontaneous
  Country: US (occurrence: None)
  Receive Date: 20160302
  Receipt Date: 20160302
  Transmission Date: 20160526
  Serious: Yes (Life-Threatening, Other)
  Sender: FDA-Public Use
  Company Number: None

PATIENT
  Age: 74 Year
  Sex: Male

DRUGS (7)
  1. JANTOVEN [Suspect]
     Active Substance: WARFARIN SODIUM
     Indication: ANTICOAGULANT THERAPY
     Dosage: 4-5 MG QD ORAL
     Route: 048
     Dates: start: 20160201, end: 20160229
  2. METOPROLOL. [Suspect]
     Active Substance: METOPROLOL
  3. PHENYTOIN. [Concomitant]
     Active Substance: PHENYTOIN
  4. DIGITEK [Concomitant]
     Active Substance: DIGOXIN
  5. CALCITROL [Concomitant]
     Active Substance: CALCITRIOL
  6. SIMVASTATIN. [Concomitant]
     Active Substance: SIMVASTATIN
  7. GLYBURIDE. [Concomitant]
     Active Substance: GLYBURIDE

REACTIONS (2)
  - International normalised ratio increased [None]
  - Product substitution issue [None]

NARRATIVE: CASE EVENT DATE: 20160301
